FAERS Safety Report 5943036-1 (Version None)
Quarter: 2008Q4

REPORT INFORMATION
  Report Type: 
  Country: None (occurrence: None)
  Receive Date: 20081103
  Receipt Date: 20070726
  Transmission Date: 20090506
  Serious: Yes (Death, Hospitalization)
  Sender: FDA-Public Use
  Company Number: 2007US001726

PATIENT
  Age: 48 Year
  Sex: Male
  Weight: 101.6 kg

DRUGS (2)
  1. PROGRAF [Suspect]
     Indication: KIDNEY TRANSPLANT REJECTION
     Dates: start: 20050729, end: 20050922
  2. CELLCEPT [Concomitant]

REACTIONS (20)
  - ATRIAL SEPTAL DEFECT [None]
  - CARDIOMEGALY [None]
  - CEREBRAL INFARCTION [None]
  - COLITIS [None]
  - COMPLICATIONS OF TRANSPLANT SURGERY [None]
  - EYE MOVEMENT DISORDER [None]
  - GRAND MAL CONVULSION [None]
  - HEPATIC ENZYME INCREASED [None]
  - HEPATIC NECROSIS [None]
  - HEPATORENAL SYNDROME [None]
  - HYPERKALAEMIA [None]
  - HYPOTENSION [None]
  - LACTIC ACIDOSIS [None]
  - NYSTAGMUS [None]
  - PNEUMONIA ASPIRATION [None]
  - PROGRESSIVE MULTIFOCAL LEUKOENCEPHALOPATHY [None]
  - PULMONARY CONGESTION [None]
  - PULMONARY HYPERTENSION [None]
  - RHABDOMYOLYSIS [None]
  - THROMBOTIC MICROANGIOPATHY [None]
